FAERS Safety Report 10523177 (Version 2)
Quarter: 2015Q3

REPORT INFORMATION
  Report Type: Spontaneous
  Country: KR (occurrence: KR)
  Receive Date: 20141016
  Receipt Date: 20150923
  Transmission Date: 20151125
  Serious: No
  Sender: FDA-Public Use
  Company Number: KR-OTSUKA-US-2014-13125

PATIENT

DRUGS (20)
  1. DACOGEN [Suspect]
     Active Substance: DECITABINE
     Dosage: 20 MG/M2
     Route: 042
     Dates: start: 20110909, end: 20110909
  2. DACOGEN [Suspect]
     Active Substance: DECITABINE
     Dosage: 20 MG/M2
     Route: 042
     Dates: start: 20111007, end: 20111007
  3. DACOGEN [Suspect]
     Active Substance: DECITABINE
     Indication: MYELODYSPLASTIC SYNDROME
     Dosage: 20 MG/M2
     Route: 042
     Dates: start: 20110905, end: 20110905
  4. DACOGEN [Suspect]
     Active Substance: DECITABINE
     Dosage: 20 MG/M2
     Route: 042
     Dates: start: 20111117, end: 20111117
  5. DACOGEN [Suspect]
     Active Substance: DECITABINE
     Dosage: 20 MG/M2
     Route: 042
     Dates: start: 20110906, end: 20110906
  6. DACOGEN [Suspect]
     Active Substance: DECITABINE
     Dosage: 20 MG/M2
     Route: 042
     Dates: start: 20111006, end: 20111006
  7. DACOGEN [Suspect]
     Active Substance: DECITABINE
     Dosage: 20 MG/M2
     Route: 042
     Dates: start: 20110908, end: 20110908
  8. DACOGEN [Suspect]
     Active Substance: DECITABINE
     Dosage: 20 MG/M2
     Route: 042
     Dates: start: 20111008, end: 20111008
  9. DACOGEN [Suspect]
     Active Substance: DECITABINE
     Dosage: 20 MG/M2
     Route: 042
     Dates: start: 20111220, end: 20111220
  10. DACOGEN [Suspect]
     Active Substance: DECITABINE
     Dosage: 20 MG/M2
     Route: 042
     Dates: start: 20110907, end: 20110907
  11. DACOGEN [Suspect]
     Active Substance: DECITABINE
     Dosage: 20 MG/M2
     Route: 042
     Dates: start: 20111004, end: 20111004
  12. DACOGEN [Suspect]
     Active Substance: DECITABINE
     Dosage: 20 MG/M2
     Route: 042
     Dates: start: 20111223, end: 20111223
  13. DACOGEN [Suspect]
     Active Substance: DECITABINE
     Dosage: 20 MG/M2
     Route: 042
     Dates: start: 20111005, end: 20111005
  14. DACOGEN [Suspect]
     Active Substance: DECITABINE
     Dosage: 20 MG/M2
     Route: 042
     Dates: start: 20111115, end: 20111115
  15. DACOGEN [Suspect]
     Active Substance: DECITABINE
     Dosage: 20 MG/M2
     Route: 042
     Dates: start: 20111222, end: 20111222
  16. DACOGEN [Suspect]
     Active Substance: DECITABINE
     Dosage: 20 MG/M2
     Route: 042
     Dates: start: 20111118, end: 20111118
  17. DACOGEN [Suspect]
     Active Substance: DECITABINE
     Dosage: 20 MG/M2
     Route: 042
     Dates: start: 20111121, end: 20111121
  18. DACOGEN [Suspect]
     Active Substance: DECITABINE
     Dosage: 20 MG/M2
     Route: 042
     Dates: start: 20111116, end: 20111116
  19. DACOGEN [Suspect]
     Active Substance: DECITABINE
     Dosage: 20 MG/M2
     Route: 042
     Dates: start: 20111219, end: 20111219
  20. DACOGEN [Suspect]
     Active Substance: DECITABINE
     Dosage: 20 MG/M2
     Route: 042
     Dates: start: 20111221, end: 20111221

REACTIONS (2)
  - Diverticulitis [Recovered/Resolved]
  - Otitis media [Not Recovered/Not Resolved]

NARRATIVE: CASE EVENT DATE: 20111031
